FAERS Safety Report 8481353-4 (Version None)
Quarter: 2012Q3

REPORT INFORMATION
  Report Type: 
  Country: None (occurrence: None)
  Receive Date: 20120702
  Receipt Date: 20120622
  Transmission Date: 20120928
  Serious: Yes (Life-Threatening, Other)
  Sender: FDA-Public Use
  Company Number: US-JNJFOC-20120602027

PATIENT
  Sex: Female
  Weight: 86.18 kg

DRUGS (16)
  1. OMEPRAZOLE [Concomitant]
     Indication: DYSPEPSIA
     Route: 048
  2. ASPIRIN [Concomitant]
     Route: 048
  3. AZATHIOPRINE [Concomitant]
     Route: 048
  4. PREDNISONE TAB [Concomitant]
     Route: 048
  5. FOLIC ACID [Concomitant]
     Route: 048
  6. LANTUS [Concomitant]
     Indication: DIABETES MELLITUS
     Dosage: 30 UNITS
     Route: 058
  7. ALBUTEROL [Concomitant]
     Route: 065
  8. WELCHOL [Concomitant]
     Indication: BLOOD CHOLESTEROL
     Dosage: 625/6 TABLET
     Route: 048
  9. VITAMIN E [Concomitant]
     Indication: PRODUCT USED FOR UNKNOWN INDICATION
     Route: 048
  10. SYMBICORT [Concomitant]
     Dosage: 160-4.5, 4 PUFFS A DAY
     Route: 065
  11. VENTOLIN HFA [Concomitant]
     Route: 065
  12. DRY EYE [Concomitant]
     Route: 031
  13. REMICADE [Suspect]
     Indication: RHEUMATOID ARTHRITIS
     Route: 042
     Dates: start: 20100101
  14. ALENDRONATE SODIUM [Concomitant]
     Indication: BONE DISORDER
     Route: 048
  15. LOVASTATIN [Concomitant]
     Route: 048
  16. GABAPENTIN [Concomitant]
     Indication: PAIN
     Route: 048

REACTIONS (3)
  - LUNG INFECTION [None]
  - IDIOPATHIC PULMONARY FIBROSIS [None]
  - HYPERTHYROIDISM [None]
